FAERS Safety Report 5120214-5 (Version None)
Quarter: 2006Q4

REPORT INFORMATION
  Report Type: 
  Country: None (occurrence: None)
  Receive Date: 20061004
  Receipt Date: 20060922
  Transmission Date: 20070319
  Serious: Yes (Other)
  Sender: FDA-Public Use
  Company Number: PHNR2006AU01326

PATIENT
  Sex: Male

DRUGS (1)
  1. CLOZARIL [Suspect]
     Dosage: 12.5 - 900MG DAILY
     Route: 048
     Dates: start: 20020225, end: 20060919

REACTIONS (1)
  - OBSESSIVE-COMPULSIVE DISORDER [None]
